FAERS Safety Report 9645893 (Version 2)
Quarter: 2013Q4

REPORT INFORMATION
  Report Type: Spontaneous
  Country: DE (occurrence: DE)
  Receive Date: 20131025
  Receipt Date: 20131206
  Transmission Date: 20140711
  Serious: Yes (Other)
  Sender: FDA-Public Use
  Company Number: DE-JNJFOC-20131014431

PATIENT
  Sex: Female
  Weight: 100 kg

DRUGS (5)
  1. XARELTO [Suspect]
     Indication: PRODUCT USED FOR UNKNOWN INDICATION
     Route: 048
  2. BISOPROLOL [Concomitant]
     Route: 065
  3. OXYBUTYNIN [Concomitant]
     Route: 065
  4. PANTOPRAZOLE [Concomitant]
     Route: 065
  5. TORASEMID [Concomitant]
     Route: 065

REACTIONS (2)
  - Delusion [Recovering/Resolving]
  - Hallucination [Recovering/Resolving]
